FAERS Safety Report 6931125-4 (Version None)
Quarter: 2010Q3

REPORT INFORMATION
  Report Type: 
  Country: None (occurrence: None)
  Receive Date: 20100818
  Receipt Date: 20100803
  Transmission Date: 20110219
  Serious: Yes (Other)
  Sender: FDA-Public Use
  Company Number: PHHY2010US51637

PATIENT
  Age: 29 Year
  Sex: Female

DRUGS (4)
  1. TRILEPTAL [Suspect]
     Dosage: 600 MG, UNK
  2. KEPPRA [Suspect]
     Dosage: 3000 MG, UNK
  3. FOLIC ACID [Concomitant]
     Dosage: 4 MG, UNK
  4. PRENATAL [Concomitant]
     Dosage: UNK

REACTIONS (4)
  - ABDOMINAL PAIN [None]
  - ABORTION SPONTANEOUS [None]
  - DRUG EXPOSURE DURING PREGNANCY [None]
  - VAGINAL HAEMORRHAGE [None]
